FAERS Safety Report 4830099-X (Version None)
Quarter: 2005Q4

REPORT INFORMATION
  Report Type: 
  Country: None (occurrence: None)
  Receive Date: 20051117
  Receipt Date: 20051107
  Transmission Date: 20060501
  Serious: Yes (Other)
  Sender: FDA-Public Use
  Company Number: 2005AC01781

PATIENT
  Age: 72 Year
  Sex: Male

DRUGS (3)
  1. LISINOPRIL [Suspect]
     Indication: HYPERTENSION
     Route: 048
  2. INDOCIN [Suspect]
     Indication: GOUT
  3. DORZOLAMIDE [Concomitant]
     Indication: DRY EYE

REACTIONS (1)
  - METABOLIC ACIDOSIS [None]
